FAERS Safety Report 6709584-1 (Version None)
Quarter: 2010Q2

REPORT INFORMATION
  Report Type: 
  Country: None (occurrence: None)
  Receive Date: 20100429
  Receipt Date: 20090707
  Transmission Date: 20101027
  Serious: No
  Sender: FDA-Public Use
  Company Number: 2009-00327

PATIENT
  Age: 30 Year
  Sex: Male
  Weight: 92.5338 kg

DRUGS (1)
  1. ZICAM COLD REMEDY RAPIDMELTS WITH VITAMIN C [Suspect]
     Dosage: EVERY 3 HOURS,
     Dates: start: 20090703, end: 20090704

REACTIONS (2)
  - AGEUSIA [None]
  - ANOSMIA [None]
